FAERS Safety Report 13112299 (Version 2)
Quarter: 2017Q1

REPORT INFORMATION
  Report Type: Spontaneous
  Country: FR (occurrence: FR)
  Receive Date: 20170113
  Receipt Date: 20170320
  Transmission Date: 20170428
  Serious: Yes (Death, Other)
  Sender: FDA-Public Use
  Company Number: FR-BIOGEN-2017BI00342129

PATIENT
  Sex: Female
  Weight: 2.86 kg

DRUGS (3)
  1. TECFIDERA [Suspect]
     Active Substance: DIMETHYL FUMARATE
     Indication: MATERNAL EXPOSURE TIMING UNSPECIFIED
     Route: 064
     Dates: start: 201505, end: 20150924
  2. DITROPAN [Concomitant]
     Active Substance: OXYBUTYNIN CHLORIDE
     Indication: PRODUCT USED FOR UNKNOWN INDICATION
     Route: 064
     Dates: end: 20160924
  3. LIORESAL [Concomitant]
     Active Substance: BACLOFEN
     Indication: PRODUCT USED FOR UNKNOWN INDICATION
     Route: 064
     Dates: end: 20160924

REACTIONS (6)
  - Umbilical cord prolapse [Unknown]
  - Umbilical cord vascular disorder [Unknown]
  - Placental disorder [Unknown]
  - Meconium in amniotic fluid [Unknown]
  - Foetal exposure timing unspecified [Unknown]
  - Foetal death [Fatal]

NARRATIVE: CASE EVENT DATE: 20160517
